FAERS Safety Report 5413417-3 (Version None)
Quarter: 2007Q3

REPORT INFORMATION
  Report Type: 
  Country: None (occurrence: None)
  Receive Date: 20070810
  Receipt Date: 20070612
  Transmission Date: 20080115
  Serious: Yes (Other)
  Sender: FDA-Public Use
  Company Number: 2007VX001631

PATIENT
  Age: 64 Year
  Sex: Female

DRUGS (1)
  1. A643_INTERFERON ALFACON-1 (A643_INTERFERON ALFACON-1) [Suspect]
     Indication: HEPATITIS C
     Dosage: 9 MIU; TIW;SC; 9 MIU;BIW;SC
     Route: 058

REACTIONS (4)
  - ANAEMIA [None]
  - GRANULOCYTE COUNT DECREASED [None]
  - HEPATIC NEOPLASM MALIGNANT [None]
  - WHITE BLOOD CELL COUNT DECREASED [None]
